FAERS Safety Report 26138782 (Version 2)
Quarter: 2025Q4

REPORT INFORMATION
  Report Type: Spontaneous
  Country: US (occurrence: US)
  Receive Date: 20251210
  Receipt Date: 20251218
  Transmission Date: 20260117
  Serious: Yes (Life-Threatening, Hospitalization, Other)
  Sender: AUROBINDO
  Company Number: US-MLMSERVICE-20251120-PI720403-00204-1

PATIENT
  Age: 42 Year
  Sex: Male

DRUGS (1)
  1. LOPERAMIDE [Suspect]
     Active Substance: LOPERAMIDE
     Indication: Drug withdrawal syndrome
     Dosage: 100 TO 200 MG OF LOPERAMIDE DAILY
     Route: 065

REACTIONS (10)
  - Electrocardiogram QT prolonged [Unknown]
  - Seizure [Unknown]
  - Ventricular tachycardia [Recovered/Resolved]
  - Ventricular fibrillation [Recovered/Resolved]
  - Intentional product misuse [Unknown]
  - Withdrawal syndrome [Unknown]
  - Unmasking of previously unidentified disease [Recovering/Resolving]
  - Syncope [Recovering/Resolving]
  - Acute myocardial infarction [Recovered/Resolved]
  - Cardiac arrest [Recovered/Resolved]
